FAERS Safety Report 21998663 (Version 3)
Quarter: 2023Q1

REPORT INFORMATION
  Report Type: Report from Study
  Country: US (occurrence: US)
  Receive Date: 20230216
  Receipt Date: 20230304
  Transmission Date: 20230418
  Serious: Yes (Hospitalization, Other)
  Sender: FDA-Public Use
  Company Number: US-TAKEDA-2021TUS054912

PATIENT
  Sex: Female
  Weight: 44 kg

DRUGS (19)
  1. HUMAN IMMUNOGLOBULIN G [Suspect]
     Active Substance: HUMAN IMMUNOGLOBULIN G
     Indication: Selective IgA immunodeficiency
     Dosage: 20 GRAM, Q4WEEKS
     Route: 042
     Dates: start: 20210825
  2. HUMAN IMMUNOGLOBULIN G [Suspect]
     Active Substance: HUMAN IMMUNOGLOBULIN G
     Indication: Selective IgA immunodeficiency
     Dosage: 20 GRAM, Q4WEEKS
     Route: 042
     Dates: start: 20210825
  3. DIPHENHYDRAMINE [Concomitant]
     Active Substance: DIPHENHYDRAMINE
  4. METOPROLOL SUCCINATE [Concomitant]
     Active Substance: METOPROLOL SUCCINATE
  5. VITAMIN D3 [Concomitant]
     Active Substance: CHOLECALCIFEROL
  6. EPINEPHRINE [Concomitant]
     Active Substance: EPINEPHRINE
  7. SODIUM CHLORIDE [Concomitant]
     Active Substance: SODIUM CHLORIDE
  8. KEPPRA [Concomitant]
     Active Substance: LEVETIRACETAM
  9. GABAPENTIN [Concomitant]
     Active Substance: GABAPENTIN
  10. PLAQUENIL [Concomitant]
     Active Substance: HYDROXYCHLOROQUINE SULFATE
  11. ACETAMINOPHEN [Concomitant]
     Active Substance: ACETAMINOPHEN
  12. CETIRIZINE HYDROCHLORIDE [Concomitant]
     Active Substance: CETIRIZINE HYDROCHLORIDE
  13. VUMERITY [Concomitant]
     Active Substance: DIROXIMEL FUMARATE
  14. LOPRESSOR [Concomitant]
     Active Substance: METOPROLOL TARTRATE
  15. IMODIUM [Concomitant]
     Active Substance: LOPERAMIDE HYDROCHLORIDE
  16. HYDROXYCHLOROQUINE [Concomitant]
     Active Substance: HYDROXYCHLOROQUINE
  17. DESIPRAMINE [Concomitant]
     Active Substance: DESIPRAMINE
  18. ASPIRIN [Concomitant]
     Active Substance: ASPIRIN
  19. IBUPROFEN [Concomitant]
     Active Substance: IBUPROFEN

REACTIONS (3)
  - Appendicitis [Unknown]
  - Peripheral coldness [Unknown]
  - Pain [Unknown]
